FAERS Safety Report 7451014-9 (Version None)
Quarter: 2011Q2

REPORT INFORMATION
  Report Type: 
  Country: None (occurrence: None)
  Receive Date: 20110502
  Receipt Date: 20110421
  Transmission Date: 20111010
  Serious: Yes (Other)
  Sender: FDA-Public Use
  Company Number: US-ROCHE-772997

PATIENT
  Sex: Male

DRUGS (3)
  1. PEGASYS [Suspect]
     Dosage: DOSE INCREASED
     Route: 065
  2. RIBASPHERE [Concomitant]
  3. PEGASYS [Suspect]
     Route: 065

REACTIONS (2)
  - DYSPNOEA [None]
  - X-RAY ABNORMAL [None]
